FAERS Safety Report 9987066 (Version 1)
Quarter: 2014Q1

REPORT INFORMATION
  Report Type: Report from Study
  Country: US (occurrence: US)
  Receive Date: 20140307
  Receipt Date: 20140307
  Transmission Date: 20141002
  Serious: No
  Sender: FDA-Public Use
  Company Number: US-ABBVIE-13P-163-1081671-00

PATIENT
  Age: 40 Year
  Sex: Female
  Weight: 72.64 kg

DRUGS (5)
  1. HUMIRA [Suspect]
     Indication: PSORIATIC ARTHROPATHY
     Dates: start: 201207
  2. CYMBALTA [Concomitant]
     Indication: FIBROMYALGIA
  3. LEUFLUNOMIDE [Concomitant]
     Indication: PSORIATIC ARTHROPATHY
  4. ULTRAM [Concomitant]
     Indication: PSORIATIC ARTHROPATHY
  5. ROBAXIN [Concomitant]
     Indication: PSORIATIC ARTHROPATHY

REACTIONS (7)
  - White blood cell count decreased [Recovering/Resolving]
  - Nasopharyngitis [Recovered/Resolved]
  - Infection [Recovered/Resolved]
  - Back pain [Recovered/Resolved]
  - Urinary tract infection [Recovered/Resolved]
  - Vertigo [Not Recovered/Not Resolved]
  - Hypoaesthesia oral [Recovered/Resolved]
